FAERS Safety Report 8617299-8 (Version None)
Quarter: 2012Q3

REPORT INFORMATION
  Report Type: 
  Country: None (occurrence: None)
  Receive Date: 20120823
  Receipt Date: 20120814
  Transmission Date: 20120928
  Serious: Yes (Other)
  Sender: FDA-Public Use
  Company Number: US-ASTRAZENECA-2011SE49397

PATIENT
  Age: 76 Year
  Sex: Female

DRUGS (4)
  1. TOPROL-XL [Suspect]
     Route: 048
  2. TOPROL-XL [Suspect]
     Dosage: 150 MG
     Route: 048
  3. COZAAR [Concomitant]
  4. SPIRONOLACTONE [Concomitant]

REACTIONS (8)
  - ADRENAL NEOPLASM [None]
  - DRUG EFFECT DECREASED [None]
  - HYPERTENSION [None]
  - STRESS [None]
  - CHEST DISCOMFORT [None]
  - BLOOD CORTISOL INCREASED [None]
  - BLOOD PRESSURE INADEQUATELY CONTROLLED [None]
  - CHEST PAIN [None]
